FAERS Safety Report 15081972 (Version 3)
Quarter: 2018Q3

REPORT INFORMATION
  Report Type: Spontaneous
  Country: US (occurrence: US)
  Receive Date: 20180628
  Receipt Date: 20180706
  Transmission Date: 20181010
  Serious: No
  Sender: FDA-Public Use
  Company Number: US-BRISTOL-MYERS SQUIBB COMPANY-BMS-2018-060061

PATIENT
  Age: 90 Year
  Sex: Male
  Weight: 68.27 kg

DRUGS (2)
  1. ELIQUIS [Suspect]
     Active Substance: APIXABAN
     Indication: CEREBROVASCULAR ACCIDENT PROPHYLAXIS
     Dosage: 5 MG, BID
     Route: 048
  2. ALLOPURINOL. [Concomitant]
     Active Substance: ALLOPURINOL
     Indication: PRODUCT USED FOR UNKNOWN INDICATION
     Route: 065

REACTIONS (8)
  - Asthenia [Unknown]
  - Groin pain [Unknown]
  - Flatulence [Unknown]
  - Drug dispensing error [Unknown]
  - Fatigue [Unknown]
  - Abdominal pain [Unknown]
  - Hypersomnia [Unknown]
  - Malaise [Unknown]

NARRATIVE: CASE EVENT DATE: 20180618
